FAERS Safety Report 14481452 (Version 1)
Quarter: 2018Q1

REPORT INFORMATION
  Report Type: Report from Study
  Country: US (occurrence: US)
  Receive Date: 20180202
  Receipt Date: 20180202
  Transmission Date: 20180509
  Serious: Yes (Other)
  Sender: FDA-Public Use
  Company Number: US-EXELIXIS-CABO-17008046

PATIENT

DRUGS (2)
  1. COMETRIQ [Suspect]
     Active Substance: CABOZANTINIB S-MALATE
     Indication: HEPATIC CANCER
     Dosage: 20 MG, QD
     Route: 048
     Dates: start: 201605
  2. COMETRIQ [Suspect]
     Active Substance: CABOZANTINIB S-MALATE
     Indication: RENAL CANCER
     Dosage: 20 MG, TID
     Route: 048
     Dates: start: 20160312, end: 20160314

REACTIONS (5)
  - Dysphonia [Unknown]
  - Renal disorder [Unknown]
  - Off label use [Unknown]
  - Adrenal disorder [Unknown]
  - Diarrhoea [Unknown]
